FAERS Safety Report 5360782-1 (Version None)
Quarter: 2007Q2

REPORT INFORMATION
  Report Type: 
  Country: None (occurrence: None)
  Receive Date: 20070618
  Receipt Date: 20070613
  Transmission Date: 20071010
  Serious: Yes (Hospitalization)
  Sender: FDA-Public Use
  Company Number: TW-SANOFI-SYNTHELABO-F01200700703

PATIENT
  Sex: Male
  Weight: 70 kg

DRUGS (4)
  1. PLENDIL [Concomitant]
     Indication: HYPERTENSION
     Dosage: 5 MG
     Route: 048
  2. LEUCOVORIN CALCIUM [Suspect]
     Route: 041
     Dates: start: 20070524, end: 20070524
  3. FLUOROURACIL [Suspect]
     Route: 041
     Dates: start: 20070524, end: 20070524
  4. OXALIPLATIN [Suspect]
     Indication: COLON CANCER
     Route: 041
     Dates: start: 20070524, end: 20070524

REACTIONS (2)
  - DIARRHOEA [None]
  - HEPATITIS B [None]
